FAERS Safety Report 13577165 (Version 1)
Quarter: 2017Q2

REPORT INFORMATION
  Report Type: Other
  Country: None (occurrence: US)
  Receive Date: 20170524
  Receipt Date: 20170524
  Transmission Date: 20170830
  Serious: Yes (Other)
  Sender: FDA-Public Use
  Company Number: US-GUTHY-RENKER LLC-2021159

PATIENT
  Age: 49 Year
  Sex: Female

DRUGS (2)
  1. UNDISCLOSED ASTHMA MEDICATION [Concomitant]
  2. IT COSMETICS BYE BYE FOUNDATION WITH SPF 50+ [Suspect]
     Active Substance: TITANIUM DIOXIDE\ZINC OXIDE
     Indication: PROPHYLAXIS AGAINST SOLAR RADIATION
     Route: 061
     Dates: start: 20170508, end: 20170510

REACTIONS (4)
  - Asthma [None]
  - Stress [None]
  - Impetigo [Recovering/Resolving]
  - Skin ulcer [None]

NARRATIVE: CASE EVENT DATE: 20170511
